FAERS Safety Report 24923063 (Version 1)
Quarter: 2025Q1

REPORT INFORMATION
  Report Type: Spontaneous
  Country: US (occurrence: US)
  Receive Date: 20250204
  Receipt Date: 20250204
  Transmission Date: 20250408
  Serious: No
  Sender: AMGEN
  Company Number: US-AMGEN-USASP2025021932

PATIENT
  Age: 75 Year
  Sex: Male

DRUGS (1)
  1. PREDNISONE [Suspect]
     Active Substance: PREDNISONE
     Indication: Transient acantholytic dermatosis
     Dosage: 15 MILLIGRAM, QD
     Route: 065

REACTIONS (5)
  - Pruritus [Unknown]
  - Sleep disorder [Unknown]
  - Night sweats [Unknown]
  - Asthenia [Unknown]
  - Off label use [Unknown]
